FAERS Safety Report 15605118 (Version 1)
Quarter: 2018Q4

REPORT INFORMATION
  Report Type: Spontaneous
  Country: GB (occurrence: GB)
  Receive Date: 20181112
  Receipt Date: 20181112
  Transmission Date: 20190205
  Serious: Yes (Other)
  Sender: FDA-Public Use
  Company Number: GB-PFIZER INC-2018451580

PATIENT
  Age: 46 Year
  Sex: Male
  Weight: 82 kg

DRUGS (13)
  1. DOXYCYCLINE MONOHYDRATE [Suspect]
     Active Substance: DOXYCYCLINE
     Dosage: TWO NOWTHEN ONE DAILY.
     Route: 048
     Dates: start: 20181002, end: 20181009
  2. ATORVASTATIN [Concomitant]
     Active Substance: ATORVASTATIN
     Dosage: 1 DF, 1X/DAY
     Dates: start: 20180313
  3. CLARITHROMYCIN. [Concomitant]
     Active Substance: CLARITHROMYCIN
     Dosage: 1 DF, 2X/DAY (EVERY 12 HOURS)
     Dates: start: 20180920, end: 20180927
  4. BRALTUS [Concomitant]
     Dosage: 1 DF, 1X/DAY
     Route: 055
     Dates: start: 20181012
  5. AMOXICILLIN. [Concomitant]
     Active Substance: AMOXICILLIN
     Dosage: 3 DF, 1X/DAY
     Dates: start: 20180903, end: 20180910
  6. HYDROCORTISONE. [Concomitant]
     Active Substance: HYDROCORTISONE
     Dosage: APPLY THINLY TO THE AFFECTED AREA(S)
     Dates: start: 20181009
  7. CLOBETASONE BUTYRATE [Concomitant]
     Active Substance: CLOBETASONE BUTYRATE
     Dosage: APPLY 1-2 TIMES/DAY
     Dates: start: 20180716, end: 20180723
  8. MIRTAZAPINE. [Concomitant]
     Active Substance: MIRTAZAPINE
     Dosage: AT NIGHT
     Dates: start: 20180313
  9. SALBUTAMOL [Concomitant]
     Active Substance: ALBUTEROL
     Dosage: 2 DF, UNK
     Route: 055
     Dates: start: 20180313
  10. PROCHLORPERAZINE. [Concomitant]
     Active Substance: PROCHLORPERAZINE
     Dosage: 2 DF, 1X/DAY
     Dates: start: 20181004, end: 20181006
  11. PREDNISOLONE. [Concomitant]
     Active Substance: PREDNISOLONE
     Dosage: 8 DAILY FOR 1 WEEK THEN DECREASE BY 1 PER DAY FOR 1 WEEK
     Dates: start: 20180920, end: 20181003
  12. CETIRIZINE [Concomitant]
     Active Substance: CETIRIZINE HYDROCHLORIDE
     Dosage: 1 DF, 1X/DAY
     Dates: start: 20180313
  13. FOSTAIR [Concomitant]
     Active Substance: BECLOMETHASONE\FORMOTEROL
     Dosage: 4 DF, 1X/DAY (PUFFS)
     Dates: start: 20180516

REACTIONS (3)
  - Arthralgia [Unknown]
  - Myalgia [Unknown]
  - Muscle spasms [Recovered/Resolved]
